FAERS Safety Report 24023418 (Version 5)
Quarter: 2024Q3

REPORT INFORMATION
  Report Type: Report from Study
  Country: TR (occurrence: TR)
  Receive Date: 20240627
  Receipt Date: 20240710
  Transmission Date: 20241017
  Serious: No
  Sender: ROCHE
  Company Number: TR-ROCHE-3161940

PATIENT
  Age: 59 Year
  Sex: Female
  Weight: 100.0 kg

DRUGS (36)
  1. ALECTINIB [Suspect]
     Active Substance: ALECTINIB
     Indication: Lung cancer metastatic
     Route: 048
     Dates: start: 20211117
  2. ALECTINIB [Suspect]
     Active Substance: ALECTINIB
     Route: 048
     Dates: start: 20190527
  3. KEPPRA [Concomitant]
     Active Substance: LEVETIRACETAM
     Indication: Brain operation
     Route: 048
     Dates: start: 20190129, end: 20220826
  4. COLEDAN [Concomitant]
     Indication: Vitamin D deficiency
     Route: 048
     Dates: start: 20211215
  5. HUMAN RED BLOOD CELL [Concomitant]
     Active Substance: HUMAN RED BLOOD CELL
     Indication: Anaemia
     Dosage: SUSPENTION
     Route: 042
     Dates: start: 20221224, end: 20221224
  6. LORLATINIB [Concomitant]
     Active Substance: LORLATINIB
     Dates: start: 20230224
  7. TIGECID [Concomitant]
     Indication: Diphtheria
     Route: 042
     Dates: start: 20220826, end: 20220926
  8. TIGECID [Concomitant]
     Route: 042
     Dates: start: 20220827, end: 20220901
  9. EPITOIN [Concomitant]
     Indication: Epilepsy
     Route: 042
     Dates: start: 20220826, end: 20220914
  10. OMEPREFUL [Concomitant]
     Indication: Gastrooesophageal reflux disease
     Route: 042
     Dates: start: 20220826, end: 20220929
  11. FLIXAIR [Concomitant]
     Indication: Respiratory disorder
     Route: 055
     Dates: start: 20220826, end: 20220929
  12. HUMULIN NOS [Concomitant]
     Active Substance: INSULIN HUMAN
     Indication: Diabetes mellitus
     Route: 058
     Dates: start: 20220826, end: 20220826
  13. ACETYLCYSTEINE [Concomitant]
     Active Substance: ACETYLCYSTEINE
     Indication: Cough
     Route: 042
     Dates: start: 20220826, end: 20220929
  14. LEVETIRACETAM [Concomitant]
     Active Substance: LEVETIRACETAM
     Indication: Epilepsy
     Route: 042
     Dates: start: 20220826, end: 20220920
  15. IPRAVENT (TURKEY) [Concomitant]
     Indication: Dyspnoea
     Route: 055
     Dates: start: 20220826, end: 20220927
  16. DEKORT [Concomitant]
     Active Substance: DEXAMETHASONE
     Indication: Dermatitis
     Route: 042
     Dates: start: 20220826, end: 20220829
  17. LINAGLIPTIN [Concomitant]
     Active Substance: LINAGLIPTIN
     Indication: Diabetes mellitus
     Dosage: FREQUENCY TEXT:PRN
     Route: 048
     Dates: start: 20220826, end: 20220929
  18. TODAVIT [Concomitant]
     Route: 042
     Dates: start: 20220827, end: 20220902
  19. FUROMIDE [Concomitant]
     Indication: Bladder dysfunction
     Route: 042
     Dates: start: 20220827, end: 20220827
  20. MONOVAS (TURKEY) [Concomitant]
     Indication: Hypertension
     Dosage: FREQUENCY TEXT:PRN
     Route: 048
     Dates: start: 20220829, end: 20220927
  21. METFORMIN HYDROCHLORIDE [Concomitant]
     Active Substance: METFORMIN HYDROCHLORIDE
     Indication: Diabetes mellitus
     Route: 048
     Dates: start: 20220829, end: 20220928
  22. EFERMAG [Concomitant]
     Indication: Hypovitaminosis
     Route: 048
     Dates: start: 20220829, end: 20220908
  23. LIDOCAINE HYDROCHLORIDE [Concomitant]
     Active Substance: LIDOCAINE HYDROCHLORIDE
     Indication: Hypertension
     Route: 042
     Dates: start: 20220831, end: 20220831
  24. PERINDOPRIL [Concomitant]
     Active Substance: PERINDOPRIL
     Indication: Hypertension
     Route: 048
     Dates: start: 20220831, end: 20220929
  25. TAZERACIN [Concomitant]
     Route: 042
     Dates: start: 20220901, end: 20220914
  26. METICURE [Concomitant]
     Indication: Pyrexia
     Route: 042
     Dates: start: 20220907, end: 20220907
  27. PARACEROL [Concomitant]
     Indication: Headache
     Route: 042
     Dates: start: 20220808, end: 20220808
  28. PARACEROL [Concomitant]
     Indication: Femur fracture
  29. FULLFRESH [Concomitant]
     Indication: Xerophthalmia
     Route: 047
     Dates: start: 20220909, end: 20220911
  30. NIFEDIPINE [Concomitant]
     Active Substance: NIFEDIPINE
     Indication: Hypertension
     Route: 048
     Dates: start: 20220910, end: 20220910
  31. EKIPIM [Concomitant]
  32. TEKOSIT [Concomitant]
     Indication: Infection
     Route: 042
     Dates: start: 20220919, end: 20220928
  33. ORALAC [Concomitant]
     Indication: Diarrhoea
     Route: 048
     Dates: start: 20220920, end: 20220920
  34. EPILECURE [Concomitant]
     Indication: Epilepsy
     Route: 042
     Dates: start: 20220921, end: 20230722
  35. CETRYN [Concomitant]
     Indication: Dermatitis
     Route: 048
     Dates: start: 20220925, end: 20220929
  36. PRALAS (TURKEY) [Concomitant]
     Indication: Dyspnoea
     Route: 055
     Dates: start: 20220928, end: 20220929

REACTIONS (1)
  - Hepatic enzyme increased [Recovered/Resolved]

NARRATIVE: CASE EVENT DATE: 20220718
